FAERS Safety Report 10035772 (Version 2)
Quarter: 2014Q2

REPORT INFORMATION
  Report Type: Spontaneous
  Country: DE (occurrence: DE)
  Receive Date: 20140325
  Receipt Date: 20140429
  Transmission Date: 20141212
  Serious: Yes (Hospitalization, Other)
  Sender: FDA-Public Use
  Company Number: DE-ABBVIE-14P-062-1213840-00

PATIENT
  Age: 19 Year
  Sex: Female

DRUGS (5)
  1. HUMIRA [Suspect]
     Indication: CROHN^S DISEASE
     Route: 058
     Dates: start: 201212
  2. HUMIRA [Suspect]
     Dates: start: 201402
  3. INFLIXIMAB [Concomitant]
     Indication: PRODUCT USED FOR UNKNOWN INDICATION
     Dates: start: 201302, end: 201304
  4. AZATHIOPRIN [Concomitant]
     Indication: PRODUCT USED FOR UNKNOWN INDICATION
     Dates: start: 201303
  5. COTRIMOXAZOL [Concomitant]
     Indication: PRODUCT USED FOR UNKNOWN INDICATION

REACTIONS (8)
  - Liver function test abnormal [Recovered/Resolved]
  - Liver disorder [Recovered/Resolved]
  - Herpes simplex hepatitis [Recovered/Resolved]
  - Encephalopathy [Not Recovered/Not Resolved]
  - Hepatic necrosis [Unknown]
  - Crohn^s disease [Unknown]
  - Malaise [Unknown]
  - Drug ineffective [Unknown]
